FAERS Safety Report 8520324-6 (Version None)
Quarter: 2012Q3

REPORT INFORMATION
  Report Type: 
  Country: None (occurrence: None)
  Receive Date: 20120713
  Receipt Date: 20120713
  Transmission Date: 20120928
  Serious: Yes (Other)
  Sender: FDA-Public Use
  Company Number: None

PATIENT
  Sex: Female

DRUGS (1)
  1. SOLODYN [Suspect]
     Indication: ACNE
     Dosage: ONE QD PO ABOUT 6/16 OR 6/17/12
     Route: 048

REACTIONS (1)
  - DRUG HYPERSENSITIVITY [None]
